FAERS Safety Report 21153389 (Version 3)
Quarter: 2022Q4

REPORT INFORMATION
  Report Type: Spontaneous
  Country: US (occurrence: None)
  Receive Date: 20220731
  Receipt Date: 20221005
  Transmission Date: 20230113
  Serious: No
  Sender: FDA-Public Use
  Company Number: 2022A268113

PATIENT
  Age: 31869 Day
  Sex: Male
  Weight: 78.2 kg

DRUGS (1)
  1. BUDESONIDE\FORMOTEROL\GLYCOPYRRONIUM [Suspect]
     Active Substance: BUDESONIDE\FORMOTEROL\GLYCOPYRRONIUM
     Indication: Pneumonia viral
     Dosage: 2 PUFFS, TWO TIMES A DAY
     Route: 055
     Dates: start: 20210422

REACTIONS (6)
  - Weight decreased [Recovering/Resolving]
  - Body height decreased [Recovering/Resolving]
  - Off label use [Recovering/Resolving]
  - Product dose omission issue [Recovering/Resolving]
  - Wrong technique in device usage process [Recovering/Resolving]
  - Device malfunction [Unknown]

NARRATIVE: CASE EVENT DATE: 20220724
